FAERS Safety Report 5023756-6 (Version None)
Quarter: 2006Q2

REPORT INFORMATION
  Report Type: 
  Country: None (occurrence: None)
  Receive Date: 20060606
  Receipt Date: 20060531
  Transmission Date: 20061013
  Serious: Yes (Hospitalization)
  Sender: FDA-Public Use
  Company Number: E2090-00013-SPO-US

PATIENT
  Sex: Male
  Weight: 15.5 kg

DRUGS (6)
  1. ZONEGRAN [Suspect]
     Indication: CONVULSION
     Dosage: 200 MG, 2 IN 1 D, ORAL
     Route: 048
     Dates: start: 20050101
  2. LAMICTAL [Suspect]
  3. BACLOFEN [Concomitant]
  4. PEPCID [Concomitant]
  5. THIAMINE (THIAMINE) [Concomitant]
  6. PHENOBARBITAL TAB [Concomitant]

REACTIONS (1)
  - NEUTROPENIA [None]
